FAERS Safety Report 6823097-8 (Version None)
Quarter: 2010Q3

REPORT INFORMATION
  Report Type: 
  Country: None (occurrence: None)
  Receive Date: 20100708
  Receipt Date: 20100701
  Transmission Date: 20110219
  Serious: Yes (Other)
  Sender: FDA-Public Use
  Company Number: JP-MERCK-1007USA00467

PATIENT
  Age: 45 Year
  Sex: Female

DRUGS (12)
  1. JANUVIA [Suspect]
     Indication: DIABETES MELLITUS
     Route: 048
     Dates: start: 20100210, end: 20100630
  2. ALFAROL [Concomitant]
     Route: 048
  3. LIPITOR [Concomitant]
     Route: 048
  4. FERO-GRADUMET [Concomitant]
     Route: 048
  5. NU-LOTAN [Concomitant]
     Route: 048
  6. BOI-OGI-TO [Concomitant]
     Route: 048
  7. MEILAX [Concomitant]
     Route: 048
  8. PEPCID [Suspect]
     Route: 048
  9. RESLIN [Concomitant]
     Route: 048
  10. ROHYPNOL [Concomitant]
     Route: 048
  11. PAXIL [Concomitant]
     Route: 048
  12. PAXIL [Concomitant]
     Route: 048
     Dates: start: 20100512

REACTIONS (2)
  - DEPRESSION [None]
  - SUICIDAL IDEATION [None]
